FAERS Safety Report 5569070-1 (Version None)
Quarter: 2007Q4

REPORT INFORMATION
  Report Type: 
  Country: None (occurrence: None)
  Receive Date: 20071220
  Receipt Date: 20070618
  Transmission Date: 20080405
  Serious: No
  Sender: FDA-Public Use
  Company Number: A0659011A

PATIENT
  Age: 63 Year
  Sex: Male

DRUGS (2)
  1. AVODART [Suspect]
     Route: 048
     Dates: start: 20041001, end: 20070401
  2. LEVOTHYROXINE SODIUM [Concomitant]
     Route: 065
     Dates: start: 19910101

REACTIONS (5)
  - BLOOD THYROID STIMULATING HORMONE INCREASED [None]
  - BREAST INDURATION [None]
  - GYNAECOMASTIA [None]
  - NIPPLE PAIN [None]
  - RASH [None]
